FAERS Safety Report 16067423 (Version 1)
Quarter: 2019Q1

REPORT INFORMATION
  Report Type: Spontaneous
  Country: US (occurrence: US)
  Receive Date: 20190212
  Receipt Date: 20190212
  Transmission Date: 20190418
  Serious: Yes (Hospitalization)
  Sender: FDA-Public Use
  Company Number: None

PATIENT
  Age: 67 Year
  Sex: Female
  Weight: 49.6 kg

DRUGS (1)
  1. KYMRIAH [Suspect]
     Active Substance: TISAGENLECLEUCEL
     Indication: DIFFUSE LARGE B-CELL LYMPHOMA
     Dosage: ?          OTHER DOSE:1.3 X10^8;?
     Route: 042
     Dates: start: 20181224

REACTIONS (3)
  - Infusion related reaction [None]
  - Cytokine release syndrome [None]
  - Atrial fibrillation [None]

NARRATIVE: CASE EVENT DATE: 20181229
